FAERS Safety Report 7731258-9 (Version None)
Quarter: 2011Q3

REPORT INFORMATION
  Report Type: 
  Country: None (occurrence: None)
  Receive Date: 20110906
  Receipt Date: 20110614
  Transmission Date: 20111222
  Serious: Yes (Other)
  Sender: FDA-Public Use
  Company Number: NL-US-EMD SERONO, INC.-7065486

PATIENT
  Sex: Female
  Weight: 70 kg

DRUGS (3)
  1. MEDROXYPROGESTERONE [Concomitant]
     Indication: CONTRACEPTION
     Route: 030
  2. REBIF [Suspect]
     Indication: MULTIPLE SCLEROSIS
     Route: 058
     Dates: start: 20110511
  3. VALPROINE ACIDE [Concomitant]
     Indication: EPILEPSY
     Route: 048
     Dates: start: 20070101

REACTIONS (1)
  - PNEUMONIA [None]
